FAERS Safety Report 24379640 (Version 1)
Quarter: 2024Q3

REPORT INFORMATION
  Report Type: Spontaneous
  Country: BR (occurrence: BR)
  Receive Date: 20240930
  Receipt Date: 20240930
  Transmission Date: 20241017
  Serious: Yes (Other)
  Sender: TEVA
  Company Number: BR-TEVA-VS-3247456

PATIENT

DRUGS (6)
  1. CARBOPLATIN [Suspect]
     Active Substance: CARBOPLATIN
     Dosage: 150 MG/15 ML, INFUSED VOLUME OF 0.50 ML AT A RATE OF 2 ML/H IN INFUSION PUMP FOR 15 MINUTES.
     Route: 065
  2. CARBOPLATIN [Suspect]
     Active Substance: CARBOPLATIN
     Dosage: 150 MG/15 ML, INFUSED VOLUME OF 1.25 ML AT A RATE OF 5.0 ML/H IN INFUSION PUMP FOR 15 MINUTES.
     Route: 065
  3. CARBOPLATIN [Suspect]
     Active Substance: CARBOPLATIN
     Dosage: 150 MG/15 ML, INFUSED VOLUME OF 2.5 ML AT A RATE OF 10.0 ML/H IN INFUSION PUMP FOR 15 MINUTES
     Route: 065
  4. CARBOPLATIN [Suspect]
     Active Substance: CARBOPLATIN
     Dosage: 150 MG/15 ML, INFUSED VOLUME OF 5 ML AT A RATE OF 20.0 ML/H IN INFUSION PUMP FOR 15 MINUTES.
     Route: 065
  5. HYDROCORTISONE [Concomitant]
     Active Substance: HYDROCORTISONE\HYDROCORTISONE ACETATE
     Indication: Product used for unknown indication
  6. DIMENHYDRINATE [Concomitant]
     Active Substance: DIMENHYDRINATE
     Indication: Product used for unknown indication

REACTIONS (3)
  - Dyspnoea [Recovered/Resolved]
  - Flushing [Recovered/Resolved]
  - Nausea [Recovered/Resolved]
